FAERS Safety Report 7549176-8 (Version None)
Quarter: 2011Q2

REPORT INFORMATION
  Report Type: 
  Country: None (occurrence: None)
  Receive Date: 20110615
  Receipt Date: 20110603
  Transmission Date: 20111010
  Serious: No
  Sender: FDA-Public Use
  Company Number: PHHY2010US36428

PATIENT
  Sex: Male
  Weight: 102.49 kg

DRUGS (14)
  1. ASPIRIN [Concomitant]
  2. CRESTOR [Concomitant]
  3. COREG [Concomitant]
  4. LASIX [Concomitant]
  5. ASPIRIN [Concomitant]
  6. TASIGNA [Suspect]
     Indication: CHRONIC MYELOID LEUKAEMIA
     Dosage: 400 MG, Q12H
     Route: 048
     Dates: start: 20100512
  7. LYRICA [Concomitant]
  8. VITAMIN D [Concomitant]
  9. TASIGNA [Suspect]
     Dosage: 150 MG, BID
     Route: 048
  10. CARVEDILOL [Concomitant]
  11. RAMIPRIL [Concomitant]
  12. TASIGNA [Suspect]
     Dosage: 300 MG, BID
     Route: 048
     Dates: start: 20100501
  13. PLAVIX [Concomitant]
  14. ALTACE [Concomitant]

REACTIONS (5)
  - RASH [None]
  - RASH PRURITIC [None]
  - ABDOMINAL PAIN UPPER [None]
  - ABDOMINAL PAIN [None]
  - ANAEMIA [None]
